FAERS Safety Report 17788301 (Version 4)
Quarter: 2023Q1

REPORT INFORMATION
  Report Type: Report from Study
  Country: CA (occurrence: CA)
  Receive Date: 20200514
  Receipt Date: 20230221
  Transmission Date: 20230418
  Serious: Yes (Hospitalization, Other)
  Sender: FDA-Public Use
  Company Number: CA-JNJFOC-20190402909

PATIENT
  Age: 50 Year
  Sex: Female
  Weight: 80.6 kg

DRUGS (3)
  1. REMICADE [Suspect]
     Active Substance: INFLIXIMAB
     Indication: Crohn^s disease
     Route: 042
     Dates: start: 20130911
  2. REMICADE [Suspect]
     Active Substance: INFLIXIMAB
     Route: 042
  3. REMICADE [Suspect]
     Active Substance: INFLIXIMAB
     Route: 042
     Dates: end: 20190613

REACTIONS (14)
  - Psoriatic arthropathy [Recovering/Resolving]
  - Anal abscess [Unknown]
  - Clostridium difficile infection [Unknown]
  - Hidradenitis [Recovering/Resolving]
  - Crohn^s disease [Not Recovered/Not Resolved]
  - Injection site bruising [Unknown]
  - Infusion site pain [Unknown]
  - Pustular psoriasis [Recovering/Resolving]
  - Drug hypersensitivity [Unknown]
  - Psoriasis [Recovering/Resolving]
  - Rhinorrhoea [Unknown]
  - Drug level decreased [Unknown]
  - Off label use [Unknown]
  - Product use issue [Unknown]

NARRATIVE: CASE EVENT DATE: 20190101
